FAERS Safety Report 5123126-6 (Version None)
Quarter: 2006Q4

REPORT INFORMATION
  Report Type: 
  Country: None (occurrence: None)
  Receive Date: 20061009
  Receipt Date: 20060808
  Transmission Date: 20070319
  Serious: Yes (Death, Other)
  Sender: FDA-Public Use
  Company Number: CH-AVENTIS-200618234GDDC

PATIENT
  Age: 12 Year
  Sex: Male

DRUGS (5)
  1. EXTENCILLINE [Suspect]
     Indication: RHEUMATIC FEVER
     Route: 030
     Dates: end: 20060804
  2. LASIX [Suspect]
     Indication: CARDIAC DISORDER
     Dates: start: 20060724, end: 20060804
  3. ALDACTONE [Concomitant]
     Dates: end: 20060804
  4. CORDARONE [Concomitant]
     Dates: start: 20060715, end: 20060804
  5. RENITEN                            /00574902/ [Concomitant]
     Dosage: DOSE: O.8

REACTIONS (28)
  - ACIDOSIS [None]
  - AREFLEXIA [None]
  - ATRIAL FIBRILLATION [None]
  - BLOOD CALCIUM INCREASED [None]
  - BLOOD CHLORIDE INCREASED [None]
  - BLOOD PH DECREASED [None]
  - BLOOD POTASSIUM DECREASED [None]
  - BRADYCARDIA [None]
  - CACHEXIA [None]
  - CARDIAC FAILURE [None]
  - CARDIO-RESPIRATORY ARREST [None]
  - DYSPNOEA [None]
  - EYE ROLLING [None]
  - GAZE PALSY [None]
  - HYPOCALCAEMIA [None]
  - HYPOKALAEMIA [None]
  - HYPOTENSION [None]
  - LOSS OF CONSCIOUSNESS [None]
  - MITRAL VALVE INCOMPETENCE [None]
  - MUSCLE ATROPHY [None]
  - MYDRIASIS [None]
  - NAUSEA [None]
  - PALLOR [None]
  - PCO2 DECREASED [None]
  - SHOCK [None]
  - TACHYCARDIA [None]
  - URTICARIA [None]
  - VASODILATATION [None]
